FAERS Safety Report 6837527-9 (Version None)
Quarter: 2010Q3

REPORT INFORMATION
  Report Type: 
  Country: None (occurrence: None)
  Receive Date: 20100713
  Receipt Date: 20070515
  Transmission Date: 20110219
  Serious: No
  Sender: FDA-Public Use
  Company Number: US-PFIZER INC-2007040042

PATIENT
  Sex: Male
  Weight: 86.4 kg

DRUGS (9)
  1. CHANTIX [Suspect]
     Indication: SMOKING CESSATION THERAPY
     Route: 048
     Dates: start: 20070508
  2. NEXIUM [Concomitant]
     Route: 048
  3. VYTORIN [Concomitant]
     Route: 048
  4. CIPROFLOXACIN [Concomitant]
     Indication: ORCHITIS
     Route: 048
     Dates: start: 20070508
  5. BETA BLOCKING AGENTS [Concomitant]
     Route: 048
  6. FISH OIL [Concomitant]
     Route: 048
  7. CINNAMON [Concomitant]
     Route: 048
  8. NIACIN [Concomitant]
     Route: 048
  9. VITAMIN E [Concomitant]
     Route: 048

REACTIONS (2)
  - ASTHENIA [None]
  - FATIGUE [None]
